FAERS Safety Report 17968164 (Version 1)
Quarter: 2020Q3

REPORT INFORMATION
  Report Type: Spontaneous
  Country: RO (occurrence: RO)
  Receive Date: 20200701
  Receipt Date: 20200701
  Transmission Date: 20201103
  Serious: Yes (Hospitalization)
  Sender: FDA-Public Use
  Company Number: NVSC2020RO181558

PATIENT
  Age: 65 Year
  Sex: Female
  Weight: 120 kg

DRUGS (3)
  1. ZOMETA [Suspect]
     Active Substance: ZOLEDRONIC ACID
     Indication: BREAST CANCER METASTATIC
     Route: 065
  2. HERCEPTIN [Suspect]
     Active Substance: TRASTUZUMAB
     Indication: BREAST CANCER METASTATIC
     Dosage: 630 MG
     Route: 042
     Dates: start: 20160112
  3. HERCEPTIN [Suspect]
     Active Substance: TRASTUZUMAB
     Dosage: 600 MG, TIW
     Route: 058
     Dates: start: 201703

REACTIONS (8)
  - Renal disorder [Unknown]
  - Rib fracture [Recovering/Resolving]
  - Abdominal pain [Recovered/Resolved]
  - Staphylococcal infection [Recovered/Resolved]
  - Pain [Unknown]
  - Injection site infection [Recovering/Resolving]
  - Injection site erythema [Recovered/Resolved]
  - Gait disturbance [Unknown]

NARRATIVE: CASE EVENT DATE: 20170112
